FAERS Safety Report 5259806-1 (Version None)
Quarter: 2007Q1

REPORT INFORMATION
  Report Type: 
  Country: None (occurrence: None)
  Receive Date: 20070307
  Receipt Date: 20070221
  Transmission Date: 20070707
  Serious: Yes (Other)
  Sender: FDA-Public Use
  Company Number: 2005BI008013

PATIENT
  Age: 54 Year
  Sex: Female
  Weight: 79.3795 kg

DRUGS (8)
  1. AVONEX [Suspect]
     Indication: MULTIPLE SCLEROSIS
     Dosage: 30 UG;QW;IM
     Route: 030
     Dates: start: 20020101, end: 20030101
  2. AVONEX [Suspect]
     Indication: MULTIPLE SCLEROSIS
     Dosage: 30 UG;QW;IM
     Route: 030
     Dates: start: 20030101
  3. AVONEX [Suspect]
     Indication: MULTIPLE SCLEROSIS
     Dosage: 30 UG;QW;IM
     Route: 030
     Dates: start: 20060601
  4. DETROL LA [Concomitant]
  5. PROVIGIL [Concomitant]
  6. PROZAC [Concomitant]
  7. MYSOLINE [Concomitant]
  8. CALCIUM [Concomitant]

REACTIONS (3)
  - MALIGNANT MELANOMA OF EYELID [None]
  - METASTASIS [None]
  - METASTATIC MALIGNANT MELANOMA [None]
